FAERS Safety Report 4915921-0 (Version None)
Quarter: 2006Q1

REPORT INFORMATION
  Report Type: 
  Country: None (occurrence: None)
  Receive Date: 20060214
  Receipt Date: 20060209
  Transmission Date: 20060701
  Serious: Yes (Hospitalization)
  Sender: FDA-Public Use
  Company Number: OMPQ-PR-0602S-0088

PATIENT
  Age: 59 Year
  Sex: Female

DRUGS (7)
  1. OMNIPAQUE 140 [Suspect]
     Indication: CAROTID ARTERY DISEASE
     Dosage: ,SINGLE DOSE, I.A.
     Dates: start: 20060112, end: 20060112
  2. OMNIPAQUE 140 [Suspect]
  3. VALIUM [Concomitant]
  4. LIDOCAINE HCL (XYLOCAINE) [Concomitant]
  5. LEVOTHYROXINE SODIUM [Concomitant]
  6. ASPIRIN [Concomitant]
  7. FENTANYL CITRATE [Concomitant]

REACTIONS (8)
  - APHASIA [None]
  - BLOOD PRESSURE SYSTOLIC INCREASED [None]
  - CSF PROTEIN INCREASED [None]
  - DYSTONIA [None]
  - GAZE PALSY [None]
  - HEART RATE INCREASED [None]
  - HEMIPARESIS [None]
  - POSTURE ABNORMAL [None]
